FAERS Safety Report 22113751 (Version 3)
Quarter: 2023Q2

REPORT INFORMATION
  Report Type: Spontaneous
  Country: US (occurrence: None)
  Receive Date: 20230320
  Receipt Date: 20230512
  Transmission Date: 20230722
  Serious: Yes (Other)
  Sender: FDA-Public Use
  Company Number: 2023A063654

PATIENT
  Age: 664 Month
  Sex: Female

DRUGS (1)
  1. BREZTRI [Suspect]
     Active Substance: BUDESONIDE\FORMOTEROL\GLYCOPYRROLATE
     Indication: Asthma
     Dosage: 2 PUFFS, BID 160 UG/INHAL TWO TIMES A DAY
     Route: 055
     Dates: start: 202110

REACTIONS (10)
  - Systemic infection [Unknown]
  - Asthma [Unknown]
  - Dysgeusia [Unknown]
  - Multiple allergies [Unknown]
  - Dysphonia [Unknown]
  - Off label use [Unknown]
  - Drug effective for unapproved indication [Unknown]
  - Drug ineffective [Unknown]
  - Device delivery system issue [Unknown]
  - Wrong technique in device usage process [Unknown]

NARRATIVE: CASE EVENT DATE: 20211001
